FAERS Safety Report 24843652 (Version 1)
Quarter: 2025Q1

REPORT INFORMATION
  Report Type: Spontaneous
  Country: US (occurrence: None)
  Receive Date: 20250115
  Receipt Date: 20250115
  Transmission Date: 20250409
  Serious: Yes (Hospitalization)
  Sender: ENCUBE ETHICALS
  Company Number: US-Encube-001572

PATIENT
  Age: 61 Year
  Sex: Female

DRUGS (7)
  1. TACROLIMUS [Suspect]
     Active Substance: TACROLIMUS
     Indication: Prophylaxis against transplant rejection
  2. CELLCEPT [Concomitant]
     Active Substance: MYCOPHENOLATE MOFETIL
     Indication: Prophylaxis against transplant rejection
  3. PREDNISONE [Concomitant]
     Active Substance: PREDNISONE
  4. DULOXETINE [Concomitant]
     Active Substance: DULOXETINE
     Indication: Depressive symptom
  5. RISPERIDONE [Concomitant]
     Active Substance: RISPERIDONE
  6. RISPERIDONE [Concomitant]
     Active Substance: RISPERIDONE
  7. RISPERIDONE [Concomitant]
     Active Substance: RISPERIDONE

REACTIONS (3)
  - Psychotic disorder [Recovered/Resolved]
  - Off label use [Unknown]
  - Leukoencephalopathy [Unknown]
